FAERS Safety Report 5434536-1 (Version None)
Quarter: 2007Q3

REPORT INFORMATION
  Report Type: 
  Country: None (occurrence: None)
  Receive Date: 20070828
  Receipt Date: 20070828
  Transmission Date: 20080115
  Serious: No
  Sender: FDA-Public Use
  Company Number: None

PATIENT
  Age: 36 Year
  Sex: Male
  Weight: 186.882 kg

DRUGS (8)
  1. BYETTA [Suspect]
     Indication: TYPE 2 DIABETES MELLITUS
     Dosage: 5 MICROGRAMS BID SQ
     Route: 058
     Dates: start: 20070713, end: 20070713
  2. AVANDAMET [Concomitant]
  3. ALTACE [Concomitant]
  4. TOPROL-XL [Concomitant]
  5. LORATADINE [Concomitant]
  6. NASACORT [Concomitant]
  7. ASPIRIN [Concomitant]
  8. CPAP [Concomitant]

REACTIONS (6)
  - DIZZINESS [None]
  - DYSPNOEA [None]
  - FATIGUE [None]
  - HYPOAESTHESIA [None]
  - PALPITATIONS [None]
  - SKIN DISCOLOURATION [None]
